FAERS Safety Report 20849270 (Version 1)
Quarter: 2022Q2

REPORT INFORMATION
  Report Type: Spontaneous
  Country: US (occurrence: US)
  Receive Date: 20220519
  Receipt Date: 20220519
  Transmission Date: 20220721
  Serious: No
  Sender: FDA-Public Use
  Company Number: US-TAKEDA-2022TUS033402

PATIENT
  Sex: Female

DRUGS (2)
  1. ENTYVIO [Suspect]
     Active Substance: VEDOLIZUMAB
     Indication: Colitis ulcerative
     Dosage: UNK
     Route: 042
  2. ENTYVIO [Suspect]
     Active Substance: VEDOLIZUMAB
     Dosage: UNK UNK, Q4WEEKS
     Route: 042

REACTIONS (7)
  - Condition aggravated [Unknown]
  - Cognitive disorder [Unknown]
  - Oxygen saturation decreased [Unknown]
  - Raynaud^s phenomenon [Unknown]
  - Tachycardia [Unknown]
  - Blood pressure increased [Unknown]
  - Off label use [Unknown]
